FAERS Safety Report 9630944 (Version 2)
Quarter: 2013Q4

REPORT INFORMATION
  Report Type: Spontaneous
  Country: US (occurrence: None)
  Receive Date: 20131015
  Receipt Date: 20131112
  Transmission Date: 20140711
  Serious: Yes (Hospitalization)
  Sender: FDA-Public Use
  Company Number: 2013US002465

PATIENT
  Age: 69 Year
  Sex: Male

DRUGS (16)
  1. ICLUSING [Suspect]
     Indication: ACUTE LYMPHOCYTIC LEUKAEMIA
     Dates: start: 20130830, end: 20130905
  2. COMPAZINE [Concomitant]
  3. FISH OIL [Concomitant]
  4. METHOTREXATE [Concomitant]
  5. RITALIN [Concomitant]
  6. VITAMIN D3 [Concomitant]
  7. ASPIRIN [Concomitant]
  8. CARVEDILOL [Concomitant]
  9. CILOSTAZOL [Concomitant]
  10. CLOPIDOGREL [Concomitant]
  11. CYANOCOBALAMIN [Concomitant]
  12. FOLIC ACID [Concomitant]
  13. LISINOPRIL [Concomitant]
  14. MIRTAZAPINE [Concomitant]
  15. ONDANSETRON [Concomitant]
  16. SERTRALINE [Concomitant]

REACTIONS (7)
  - Lung adenocarcinoma stage III [None]
  - Pleural effusion [None]
  - Pancreatitis acute [None]
  - Renal atrophy [None]
  - Dehydration [None]
  - Asthenia [None]
  - Haemoglobin decreased [None]
